FAERS Safety Report 6198078-0 (Version None)
Quarter: 2009Q2

REPORT INFORMATION
  Report Type: 
  Country: None (occurrence: None)
  Receive Date: 20090513
  Receipt Date: 20090326
  Transmission Date: 20091009
  Serious: No
  Sender: FDA-Public Use
  Company Number: WWISSUE-278

PATIENT
  Sex: Female

DRUGS (1)
  1. DOXYCYCLINE HYCLATE [Suspect]
     Dates: start: 20090316, end: 20090319

REACTIONS (1)
  - HYPERSENSITIVITY [None]
